FAERS Safety Report 9055293 (Version 2)
Quarter: 2013Q2

REPORT INFORMATION
  Report Type: Spontaneous
  Country: DE (occurrence: DE)
  Receive Date: 20130209
  Receipt Date: 20130426
  Transmission Date: 20140414
  Serious: Yes (Hospitalization)
  Sender: FDA-Public Use
  Company Number: DE-AMGEN-DEUSP2013007968

PATIENT
  Age: 71 Year
  Sex: Female
  Weight: 40 kg

DRUGS (6)
  1. PROLIA [Suspect]
     Indication: OSTEOPOROSIS POSTMENOPAUSAL
     Dosage: 60 MG, Q6MO
     Route: 058
     Dates: start: 20111129, end: 20121212
  2. TIMONIL [Concomitant]
     Indication: TRIGEMINAL NEURALGIA
     Dosage: 300 MG, BID
  3. PREDNISOLON                        /00016201/ [Concomitant]
     Indication: PNEUMOCYSTIS JIROVECII PNEUMONIA
     Dosage: 5 MG, QD
  4. ARAVA [Concomitant]
     Indication: PNEUMOCYSTIS JIROVECII PNEUMONIA
     Dosage: 10 MG, QD
  5. INUVAIR [Concomitant]
     Indication: CHRONIC OBSTRUCTIVE PULMONARY DISEASE
  6. L THYROXINE [Concomitant]
     Indication: HYPOTHYROIDISM
     Dosage: 100 UNK, UNK

REACTIONS (2)
  - Trigeminal neuralgia [Recovering/Resolving]
  - Drug interaction [Unknown]
